FAERS Safety Report 5578993-9 (Version None)
Quarter: 2007Q4

REPORT INFORMATION
  Report Type: 
  Country: None (occurrence: None)
  Receive Date: 20071228
  Receipt Date: 20071218
  Transmission Date: 20080405
  Serious: Yes (Disabling)
  Sender: FDA-Public Use
  Company Number: SPV1-2007-05250

PATIENT

DRUGS (1)
  1. VYVANSE [Suspect]

REACTIONS (1)
  - RAYNAUD'S PHENOMENON [None]
